FAERS Safety Report 22284633 (Version 2)
Quarter: 2023Q2

REPORT INFORMATION
  Report Type: Spontaneous
  Country: US (occurrence: US)
  Receive Date: 20230504
  Receipt Date: 20230522
  Transmission Date: 20230721
  Serious: Yes (Hospitalization)
  Sender: FDA-Public Use
  Company Number: US-LUPIN PHARMACEUTICALS INC.-2023-03366

PATIENT
  Age: 54 Year
  Sex: Male

DRUGS (8)
  1. OXYCODONE [Suspect]
     Active Substance: OXYCODONE
     Indication: Pain in extremity
     Dosage: 10 MILLIGRAM, QID (FOUR TIMES A DAY- EVERY 6 HOURS)
     Route: 065
  2. OXYCODONE [Suspect]
     Active Substance: OXYCODONE
     Indication: Wound complication
  3. OXYCODONE [Suspect]
     Active Substance: OXYCODONE
     Indication: Impaired healing
  4. OXYCODONE [Suspect]
     Active Substance: OXYCODONE
     Indication: Pain
  5. BUPRENORPHINE [Suspect]
     Active Substance: BUPRENORPHINE
     Indication: Pain in extremity
     Dosage: 1 MILLIGRAM, BID (ON DAY 1)
     Route: 065
  6. BUPRENORPHINE [Suspect]
     Active Substance: BUPRENORPHINE
     Indication: Wound complication
     Dosage: 2 MILLIGRAM, BID (FROM DAY 2) (LATER THE DOSE WAS REDUCED TO 1 MG BID)
     Route: 065
  7. BUPRENORPHINE [Suspect]
     Active Substance: BUPRENORPHINE
     Indication: Impaired healing
     Dosage: 1 MILLIGRAM, BID
     Route: 065
  8. BUPRENORPHINE [Suspect]
     Active Substance: BUPRENORPHINE
     Indication: Pain

REACTIONS (2)
  - Sedation [Recovered/Resolved]
  - Confusional state [Recovered/Resolved]
